FAERS Safety Report 9436528 (Version 1)
Quarter: 2013Q3

REPORT INFORMATION
  Report Type: Spontaneous
  Country: US (occurrence: US)
  Receive Date: 20130802
  Receipt Date: 20130802
  Transmission Date: 20140515
  Serious: Yes (Hospitalization, Other)
  Sender: FDA-Public Use
  Company Number: US-OPTIMER-20130107

PATIENT
  Age: 83 Year
  Sex: Female

DRUGS (15)
  1. DIFICID [Suspect]
     Indication: CLOSTRIDIUM DIFFICILE COLITIS
     Dosage: UNK
     Dates: start: 201303
  2. CAVILON [Concomitant]
     Indication: ERYTHEMA
     Dosage: UNK, APPLY TO RED AREA ON COCCYX, EVERY SHIFT EVERY DAY
     Route: 061
     Dates: start: 20130325
  3. FLUOXETINE HCL [Concomitant]
     Indication: MENTAL DISORDER
     Dosage: 10 MG, QD
     Route: 048
     Dates: start: 20130315
  4. AMLODIPINE BESYLATE [Concomitant]
     Indication: ESSENTIAL HYPERTENSION
     Dosage: 10 MG, QD
     Route: 048
     Dates: start: 20130315
  5. OXYCODONE HCL [Concomitant]
     Indication: PAIN
     Dosage: 5 MG, Q6H PRN
     Route: 048
     Dates: start: 20130328
  6. ACETAMINOPHEN [Concomitant]
     Indication: PYREXIA
     Dosage: 650 MG, Q4H PRN FOR TEMP 101.5 OR GREATER
     Route: 048
     Dates: start: 20130315
  7. ACETAMINOPHEN [Concomitant]
     Dosage: 5 MG, Q12H
     Route: 048
     Dates: start: 20130328
  8. CULTURELLE [Concomitant]
     Indication: DYSPEPSIA
     Dosage: 10 B CELL, UNK
     Route: 048
     Dates: start: 20130315
  9. CULTURELLE [Concomitant]
     Indication: GASTRIC DISORDER
  10. GABAPENTIN [Concomitant]
     Indication: GENERAL SYMPTOM
     Dosage: 300 MG, BID AM AND HS
     Route: 048
     Dates: start: 20130315
  11. HYPROMELLOSE [Concomitant]
     Dosage: 1 DROP IN BOTH EYES, BID
     Route: 031
     Dates: start: 20130315
  12. LIDOCAINE [Concomitant]
     Indication: GENERAL SYMPTOM
     Dosage: 1 PATCH, Q12H AT 0600 AND REMOVE AT 1800 TO RIGHT RIBS
     Route: 061
     Dates: start: 20130315
  13. LORATADINE [Concomitant]
     Indication: RHINITIS ALLERGIC
     Dosage: 10 MG, QD
     Route: 048
     Dates: start: 20130315
  14. PANTOPRAZOLE SODIUM [Concomitant]
     Indication: GASTROOESOPHAGEAL REFLUX DISEASE
     Dosage: 40 MG, QD
     Route: 048
     Dates: start: 20130315
  15. TUBERSOL [Concomitant]
     Indication: PRODUCT USED FOR UNKNOWN INDICATION
     Dosage: 0.1 ML, QD AT NIGHT
     Route: 023
     Dates: start: 20130323

REACTIONS (1)
  - Gastrointestinal haemorrhage [Unknown]
